FAERS Safety Report 4507563-6 (Version None)
Quarter: 2004Q4

REPORT INFORMATION
  Report Type: 
  Country: None (occurrence: None)
  Receive Date: 20040928
  Receipt Date: 20040714
  Transmission Date: 20050328
  Serious: Yes (Hospitalization)
  Sender: FDA-Public Use
  Company Number: 04P-163-0267273-00

PATIENT
  Age: 73 Year
  Sex: Female
  Weight: 67.1324 kg

DRUGS (11)
  1. HUMIRA [Suspect]
     Indication: RHEUMATOID ARTHRITIS
     Dosage: 40 MG, SUBCUTANEOUS
     Route: 058
     Dates: start: 20031001, end: 20040527
  2. LEVOTHYROXINE SODIUM [Concomitant]
  3. CLOPIDOGREL BISULFATE [Concomitant]
  4. FOLIC ACID [Concomitant]
  5. PROLOSLON [Concomitant]
  6. FELODIPINE [Concomitant]
  7. ATORVASTATIN CALCIUM [Concomitant]
  8. ACETYLSALICYLIC ACID [Concomitant]
  9. RAMIPRIL [Concomitant]
  10. TYLENOL PM [Concomitant]
  11. CALCIUM CITRATE [Concomitant]

REACTIONS (1)
  - CORONARY ARTERY DISEASE [None]
